FAERS Safety Report 6769430-7 (Version None)
Quarter: 2010Q2

REPORT INFORMATION
  Report Type: 
  Country: None (occurrence: None)
  Receive Date: 20100615
  Receipt Date: 20100519
  Transmission Date: 20101027
  Serious: No
  Sender: FDA-Public Use
  Company Number: DZ-NOVOPROD-308246

PATIENT
  Age: 78 Year
  Sex: Female

DRUGS (6)
  1. MIXTARD 30 HM PENFILL [Suspect]
     Indication: TYPE 2 DIABETES MELLITUS
     Dosage: 18+10+10 IU
     Dates: start: 20020101
  2. MIXTARD 30 HM PENFILL [Suspect]
     Dosage: 16+10+10 U
  3. STAGID [Suspect]
     Indication: TYPE 2 DIABETES MELLITUS
     Dosage: 500 MG, TID
     Route: 048
     Dates: end: 20100413
  4. STAGID [Suspect]
     Dosage: 500 MG, QD
     Dates: start: 20100413
  5. COTAREG [Concomitant]
     Dosage: 2 TAB, QD; REPORTED AS ^COTAREG 80^
     Route: 048
     Dates: end: 20100427
  6. COTAREG [Concomitant]
     Dosage: 2 TAB, QD; REPORTED AS ^CORTAREG 160^
     Route: 048
     Dates: start: 20100428

REACTIONS (3)
  - DEVICE FAILURE [None]
  - HYPERGLYCAEMIA [None]
  - HYPOGLYCAEMIA [None]
